FAERS Safety Report 13304623 (Version 1)
Quarter: 2017Q1

REPORT INFORMATION
  Report Type: Spontaneous
  Country: US (occurrence: US)
  Receive Date: 20170308
  Receipt Date: 20170308
  Transmission Date: 20170428
  Serious: Yes (Hospitalization, Other)
  Sender: FDA-Public Use
  Company Number: US-AMGEN-USASP2017033562

PATIENT
  Age: 67 Year
  Sex: Female

DRUGS (4)
  1. ENBREL [Suspect]
     Active Substance: ETANERCEPT
     Indication: PSORIASIS
  2. ENBREL [Suspect]
     Active Substance: ETANERCEPT
     Indication: FIBROMYALGIA
     Dosage: UNK
     Route: 065
     Dates: start: 1998, end: 1999
  3. ENBREL [Suspect]
     Active Substance: ETANERCEPT
     Indication: PSORIATIC ARTHROPATHY
  4. ENBREL [Suspect]
     Active Substance: ETANERCEPT
     Indication: RHEUMATOID ARTHRITIS

REACTIONS (11)
  - White blood cell disorder [Unknown]
  - Off label use [Unknown]
  - Cataract [Unknown]
  - Cellulitis [Unknown]
  - Loss of consciousness [Unknown]
  - Chest injury [Unknown]
  - Fall [Unknown]
  - Psoriasis [Not Recovered/Not Resolved]
  - Injury [Unknown]
  - Asthenia [Unknown]
  - Back disorder [Unknown]

NARRATIVE: CASE EVENT DATE: 1998
